FAERS Safety Report 23331806 (Version 1)
Quarter: 2023Q4

REPORT INFORMATION
  Report Type: Spontaneous
  Country: JP (occurrence: JP)
  Receive Date: 20231222
  Receipt Date: 20231222
  Transmission Date: 20240109
  Serious: Yes (Death, Other)
  Sender: FDA-Public Use
  Company Number: JP-002147023-NVSJ2023JP018040

PATIENT
  Sex: Male

DRUGS (2)
  1. DABRAFENIB [Suspect]
     Active Substance: DABRAFENIB
     Indication: Lung adenocarcinoma
     Dosage: UNK
     Route: 065
  2. TRAMETINIB [Suspect]
     Active Substance: TRAMETINIB
     Indication: Lung adenocarcinoma
     Dosage: UNK
     Route: 065

REACTIONS (2)
  - Pulmonary toxicity [Fatal]
  - Respiratory failure [Fatal]
